FAERS Safety Report 9612459 (Version 2)
Quarter: 2013Q4

REPORT INFORMATION
  Report Type: Spontaneous
  Country: US (occurrence: US)
  Receive Date: 20131010
  Receipt Date: 20131114
  Transmission Date: 20140711
  Serious: Yes (Other)
  Sender: FDA-Public Use
  Company Number: US-BAYER-2013-119619

PATIENT
  Sex: Female
  Weight: 82 kg

DRUGS (2)
  1. CIPRO [Suspect]
     Dosage: UNK UNK, QD
     Route: 048
  2. SYNTHROID [Concomitant]

REACTIONS (2)
  - Blindness [Recovered/Resolved]
  - Visual field defect [Recovered/Resolved]
